FAERS Safety Report 15750826 (Version 1)
Quarter: 2018Q4

REPORT INFORMATION
  Report Type: Spontaneous
  Country: US (occurrence: US)
  Receive Date: 20181206
  Receipt Date: 20181206
  Transmission Date: 20190205
  Serious: Yes (Hospitalization)
  Sender: FDA-Public Use
  Company Number: None

PATIENT
  Age: 21 Month
  Sex: Male
  Weight: 12.15 kg

DRUGS (1)
  1. INFANTS IBUPROFEN [Suspect]
     Active Substance: IBUPROFEN
     Indication: PYREXIA
     Dosage: ?          QUANTITY:5 ML;?
     Route: 048
     Dates: start: 20181022, end: 20181029

REACTIONS (6)
  - Dialysis [None]
  - Recalled product administered [None]
  - Tubulointerstitial nephritis [None]
  - Pulmonary oedema [None]
  - Drug ineffective [None]
  - Dehydration [None]

NARRATIVE: CASE EVENT DATE: 20181029
